FAERS Safety Report 5358267-1 (Version None)
Quarter: 2007Q2

REPORT INFORMATION
  Report Type: 
  Country: None (occurrence: None)
  Receive Date: 20070530
  Receipt Date: 20061027
  Transmission Date: 20071010
  Serious: Yes (Hospitalization)
  Sender: FDA-Public Use
  Company Number: US200603002602

PATIENT
  Age: 59 Year
  Sex: Female
  Weight: 131.5 kg

DRUGS (3)
  1. ZYPREXA [Suspect]
     Indication: BIPOLAR DISORDER
     Dosage: 20 MG
     Dates: start: 20020525, end: 20040604
  2. SEROQUEL [Concomitant]
  3. WELLBUTRIN [Concomitant]

REACTIONS (6)
  - BLOOD CHOLESTEROL INCREASED [None]
  - DIABETES MELLITUS [None]
  - DIABETIC KETOACIDOSIS [None]
  - HYPERINSULINISM [None]
  - HYPERTENSION [None]
  - OBESITY [None]
